FAERS Safety Report 15023546 (Version 1)
Quarter: 2018Q2

REPORT INFORMATION
  Report Type: Spontaneous
  Country: DE (occurrence: DE)
  Receive Date: 20180618
  Receipt Date: 20180618
  Transmission Date: 20180711
  Serious: Yes (Hospitalization, Other)
  Sender: FDA-Public Use
  Company Number: DE-TEVA-2018-DE-908226

PATIENT
  Age: 13 Year
  Sex: Male

DRUGS (3)
  1. ISOTRETINOIN-RATIOPHARM 10 MG WEICHKAPSELN [Suspect]
     Active Substance: ISOTRETINOIN
     Dosage: 20 MILLIGRAM DAILY;
     Route: 048
     Dates: start: 20170511
  2. ROXITHROMYCIN [Suspect]
     Active Substance: ROXITHROMYCIN
     Dosage: 300 MILLIGRAM DAILY;
     Dates: start: 2017, end: 2017
  3. ISOTRETINOIN-RATIOPHARM 10 MG WEICHKAPSELN [Suspect]
     Active Substance: ISOTRETINOIN
     Indication: ACNE
     Dosage: 10 MILLIGRAM DAILY;
     Route: 048
     Dates: start: 20170428, end: 20170510

REACTIONS (4)
  - SAPHO syndrome [Unknown]
  - Acne [Unknown]
  - Musculoskeletal discomfort [Recovered/Resolved]
  - Mouth cyst [None]

NARRATIVE: CASE EVENT DATE: 2017
